FAERS Safety Report 9171907 (Version 1)
Quarter: 2013Q1

REPORT INFORMATION
  Report Type: Spontaneous
  Country: US (occurrence: US)
  Receive Date: 20130319
  Receipt Date: 20130319
  Transmission Date: 20140127
  Serious: Yes (Other)
  Sender: FDA-Public Use
  Company Number: US-PFIZER INC-2013083274

PATIENT
  Age: 77 Year
  Sex: Female

DRUGS (4)
  1. AMPICILLIN [Suspect]
     Dosage: UNK
     Route: 048
  2. SEPTRA DS [Suspect]
     Route: 048
  3. CIPRO [Suspect]
     Route: 048
  4. ERYTHROMYCIN STEARATE [Suspect]
     Route: 048

REACTIONS (2)
  - Respiratory distress [Unknown]
  - Anaphylactic reaction [Unknown]
